FAERS Safety Report 20593829 (Version 2)
Quarter: 2022Q1

REPORT INFORMATION
  Report Type: Spontaneous
  Country: US (occurrence: None)
  Receive Date: 20220315
  Receipt Date: 20220315
  Transmission Date: 20220423
  Serious: No
  Sender: FDA-Public Use
  Company Number: US-ROCHE-2960080

PATIENT
  Age: 43 Year
  Sex: Female
  Weight: 63.560 kg

DRUGS (2)
  1. XOLAIR [Suspect]
     Active Substance: OMALIZUMAB
     Indication: Hereditary disorder
     Route: 065
     Dates: start: 20210823
  2. MIDODRINE [Concomitant]
     Active Substance: MIDODRINE
     Route: 065

REACTIONS (4)
  - Full blood count decreased [Unknown]
  - Swelling [Not Recovered/Not Resolved]
  - Pain [Not Recovered/Not Resolved]
  - Off label use [Unknown]

NARRATIVE: CASE EVENT DATE: 20211025
